FAERS Safety Report 12381756 (Version 11)
Quarter: 2016Q3

REPORT INFORMATION
  Report Type: Report from Study
  Country: AR (occurrence: AR)
  Receive Date: 20160518
  Receipt Date: 20160713
  Transmission Date: 20161109
  Serious: Yes (Hospitalization, Disabling, Other)
  Sender: FDA-Public Use
  Company Number: AR-GLAXOSMITHKLINE-AR2016068536

PATIENT
  Age: 66 Year
  Sex: Male
  Weight: 89 kg

DRUGS (1)
  1. ALBIGLUTIDE [Suspect]
     Active Substance: ALBIGLUTIDE
     Indication: TYPE 2 DIABETES MELLITUS
     Dosage: 30 MG, WE
     Route: 058
     Dates: start: 20151228, end: 20160201

REACTIONS (1)
  - Glomerulonephritis acute [Recovered/Resolved with Sequelae]

NARRATIVE: CASE EVENT DATE: 20160209
